FAERS Safety Report 16968560 (Version 2)
Quarter: 2019Q4

REPORT INFORMATION
  Report Type: Spontaneous
  Country: US (occurrence: US)
  Receive Date: 20191029
  Receipt Date: 20191227
  Transmission Date: 20200122
  Serious: Yes (Hospitalization, Other)
  Sender: FDA-Public Use
  Company Number: US-BIOGEN-2019BI00799726

PATIENT
  Sex: Female

DRUGS (1)
  1. TYSABRI [Suspect]
     Active Substance: NATALIZUMAB
     Indication: MULTIPLE SCLEROSIS
     Route: 065
     Dates: start: 20070104, end: 20150922

REACTIONS (8)
  - Foot fracture [Unknown]
  - Spinal compression fracture [Unknown]
  - Gait disturbance [Unknown]
  - Foot deformity [Unknown]
  - Facial bones fracture [Unknown]
  - Rib fracture [Unknown]
  - Multiple sclerosis relapse [Unknown]
  - Fall [Recovered/Resolved]
